FAERS Safety Report 20185713 (Version 1)
Quarter: 2021Q4

REPORT INFORMATION
  Report Type: Spontaneous
  Country: JP (occurrence: JP)
  Receive Date: 20211215
  Receipt Date: 20211215
  Transmission Date: 20220303
  Serious: Yes (Other)
  Sender: FDA-Public Use
  Company Number: JP-NOVAST LABORATORIES INC.-2021NOV000347

PATIENT
  Age: 64 Year
  Sex: Male

DRUGS (4)
  1. CARBOPLATIN [Suspect]
     Active Substance: CARBOPLATIN
     Indication: Small cell lung cancer
     Dosage: AREA UNDER THE CURVE 6 MG?ML?1?MIN?1
     Route: 065
  2. CARBOPLATIN [Suspect]
     Active Substance: CARBOPLATIN
     Dosage: 5 MG?ML?1MIN?1
  3. ETOPOSIDE [Suspect]
     Active Substance: ETOPOSIDE
     Indication: Small cell lung cancer
     Dosage: 100 MG?M?2
     Route: 065
  4. ETOPOSIDE [Suspect]
     Active Substance: ETOPOSIDE
     Dosage: 75 MG?M?2
     Route: 065

REACTIONS (9)
  - Amoebic colitis [Recovered/Resolved]
  - Gastrointestinal perforation [Recovering/Resolving]
  - Liver abscess [Recovering/Resolving]
  - Portal vein thrombosis [Recovering/Resolving]
  - Septic shock [Recovering/Resolving]
  - Pneumothorax [Recovering/Resolving]
  - Febrile neutropenia [Recovering/Resolving]
  - Neutropenia [Recovering/Resolving]
  - Intussusception [Recovering/Resolving]
